FAERS Safety Report 5499094-4 (Version None)
Quarter: 2007Q4

REPORT INFORMATION
  Report Type: 
  Country: None (occurrence: None)
  Receive Date: 20071026
  Receipt Date: 20070530
  Transmission Date: 20080405
  Serious: No
  Sender: FDA-Public Use
  Company Number: A0653483A

PATIENT
  Age: 76 Year
  Sex: Female

DRUGS (8)
  1. ADVAIR DISKUS 100/50 [Suspect]
     Indication: ASTHMA
     Route: 055
     Dates: start: 20010101
  2. ALBUTEROL [Suspect]
     Indication: ASTHMA
     Route: 055
  3. ALBUTEROL [Concomitant]
  4. IPRATROPIUM BROMIDE [Concomitant]
     Route: 055
  5. TOPROL-XL [Concomitant]
  6. BENICAR [Concomitant]
  7. HYDRALAZINE HCL [Concomitant]
  8. SIMVASTATIN [Concomitant]

REACTIONS (2)
  - BREAST ENLARGEMENT [None]
  - COUGH [None]
